FAERS Safety Report 11910872 (Version 1)
Quarter: 2016Q1

REPORT INFORMATION
  Report Type: Spontaneous
  Country: JP (occurrence: JP)
  Receive Date: 20160112
  Receipt Date: 20160112
  Transmission Date: 20160526
  Serious: Yes (Other)
  Sender: FDA-Public Use
  Company Number: JP-PFIZER INC-2015459984

PATIENT
  Sex: Female

DRUGS (1)
  1. XALATAN [Suspect]
     Active Substance: LATANOPROST
     Dosage: 1 GTT, DAILY
     Route: 047

REACTIONS (4)
  - Headache [Unknown]
  - Asthenia [Unknown]
  - Malaise [Unknown]
  - Palpitations [Unknown]

NARRATIVE: CASE EVENT DATE: 201512
